FAERS Safety Report 12568733 (Version 1)
Quarter: 2016Q3

REPORT INFORMATION
  Report Type: Spontaneous
  Country: US (occurrence: US)
  Receive Date: 20160719
  Receipt Date: 20160719
  Transmission Date: 20161109
  Serious: No
  Sender: FDA-Public Use
  Company Number: US-BEH-2016071208

PATIENT
  Sex: Male
  Weight: 79.37 kg

DRUGS (12)
  1. ACETAMINOPHEN. [Concomitant]
     Active Substance: ACETAMINOPHEN
  2. BACTRIM DS [Concomitant]
     Active Substance: SULFAMETHOXAZOLE\TRIMETHOPRIM
  3. RAMIPRIL. [Concomitant]
     Active Substance: RAMIPRIL
  4. LIPITOR [Concomitant]
     Active Substance: ATORVASTATIN CALCIUM
  5. CARVEDILOL. [Concomitant]
     Active Substance: CARVEDILOL
  6. FLUOXETINE [Concomitant]
     Active Substance: FLUOXETINE HYDROCHLORIDE
  7. DIPHENHYDRAMINE. [Concomitant]
     Active Substance: DIPHENHYDRAMINE
  8. EPIPEN [Concomitant]
     Active Substance: EPINEPHRINE
  9. FLONASE [Concomitant]
     Active Substance: FLUTICASONE PROPIONATE
  10. HIZENTRA [Suspect]
     Active Substance: HUMAN IMMUNOGLOBULIN G
     Indication: IMMUNODEFICIENCY COMMON VARIABLE
     Dosage: 16 G, QW
     Route: 058
  11. LEVAQUIN [Concomitant]
     Active Substance: LEVOFLOXACIN
  12. ZYRTEC [Concomitant]
     Active Substance: CETIRIZINE HYDROCHLORIDE

REACTIONS (2)
  - Administration site erythema [Unknown]
  - Administration site swelling [Unknown]
